FAERS Safety Report 8433755-X (Version None)
Quarter: 2012Q2

REPORT INFORMATION
  Report Type: 
  Country: None (occurrence: None)
  Receive Date: 20120613
  Receipt Date: 20120530
  Transmission Date: 20120825
  Serious: Yes (Death, Hospitalization)
  Sender: FDA-Public Use
  Company Number: CA-US-EMD SERONO, INC.-7015720

PATIENT
  Sex: Female

DRUGS (1)
  1. REBIF [Suspect]
     Indication: RELAPSING-REMITTING MULTIPLE SCLEROSIS
     Route: 058
     Dates: start: 20000216, end: 20120115

REACTIONS (7)
  - BREAST CANCER [None]
  - FAECAL INCONTINENCE [None]
  - FATIGUE [None]
  - SOMNOLENCE [None]
  - DEATH [None]
  - ONYCHALGIA [None]
  - INGROWING NAIL [None]
